FAERS Safety Report 23632630 (Version 1)
Quarter: 2024Q1

REPORT INFORMATION
  Report Type: Spontaneous
  Country: JP (occurrence: JP)
  Receive Date: 20240314
  Receipt Date: 20240314
  Transmission Date: 20240409
  Serious: Yes (Life-Threatening, Hospitalization)
  Sender: FDA-Public Use
  Company Number: JP-NShinyaku-EVA202306208ZZLILLY

PATIENT
  Age: 24 Year
  Sex: Female
  Weight: 52 kg

DRUGS (11)
  1. ADCIRCA [Suspect]
     Active Substance: TADALAFIL
     Indication: Pulmonary arterial hypertension
     Dosage: 20 MG, DAILY
     Route: 065
     Dates: start: 20221203, end: 20221206
  2. ADCIRCA [Suspect]
     Active Substance: TADALAFIL
     Dosage: 40 MG
     Route: 065
     Dates: start: 20221207, end: 20221213
  3. OPSUMIT [Concomitant]
     Active Substance: MACITENTAN
     Indication: Pulmonary arterial hypertension
     Dosage: UNK, UNKNOWN
     Route: 048
  4. EPOPROSTENOL [Concomitant]
     Active Substance: EPOPROSTENOL
     Indication: Pulmonary arterial hypertension
     Dosage: UNK, UNKNOWN
     Route: 042
     Dates: start: 20221203
  5. REMIMAZOLAM BESYLATE [Concomitant]
     Indication: Product used for unknown indication
     Dosage: 2.4MG/KG/H
     Route: 042
     Dates: start: 20221221
  6. REMIMAZOLAM BESYLATE [Concomitant]
     Dosage: 2.4MG/KG/H
     Route: 042
  7. FENTANYL CITRATE [Concomitant]
     Active Substance: FENTANYL CITRATE
     Indication: Product used for unknown indication
     Dosage: 0.2MCG/KG/MIN
     Route: 042
     Dates: start: 20221221
  8. REMIFENTANIL HYDROCHLORIDE [Concomitant]
     Active Substance: REMIFENTANIL HYDROCHLORIDE
     Indication: Product used for unknown indication
     Dosage: 0.1MCG/KG/MIN
     Route: 042
     Dates: start: 20221221
  9. REMIFENTANIL HYDROCHLORIDE [Concomitant]
     Active Substance: REMIFENTANIL HYDROCHLORIDE
     Dosage: 0.1MCG/KG/MIN
     Route: 042
  10. DOBUTAMINE HYDROCHLORIDE [Concomitant]
     Active Substance: DOBUTAMINE HYDROCHLORIDE
     Indication: Product used for unknown indication
     Dosage: 2MCG/KG/MIN
     Route: 042
     Dates: start: 20221221
  11. VASOPRESSIN [Concomitant]
     Active Substance: VASOPRESSIN
     Indication: Product used for unknown indication
     Dosage: UNK, UNKNOWN
     Route: 065
     Dates: start: 20221221

REACTIONS (4)
  - Right ventricular enlargement [Recovered/Resolved]
  - Maternal exposure during pregnancy [Unknown]
  - Nausea [Recovered/Resolved]
  - Off label use [Unknown]

NARRATIVE: CASE EVENT DATE: 20221203
